FAERS Safety Report 19729515 (Version 1)
Quarter: 2021Q3

REPORT INFORMATION
  Report Type: Report from Study
  Country: US (occurrence: US)
  Receive Date: 20210820
  Receipt Date: 20210820
  Transmission Date: 20211014
  Serious: Yes (Hospitalization)
  Sender: FDA-Public Use
  Company Number: US-PFIZER INC-202101057736

PATIENT
  Age: 61 Year
  Sex: Male
  Weight: 64.3 kg

DRUGS (6)
  1. FLUDARABINE PHOSPHATE. [Suspect]
     Active Substance: FLUDARABINE PHOSPHATE
     Dosage: 45 MG, 1 N 1 D
     Route: 042
     Dates: start: 20210625, end: 20210627
  2. FLUDARABINE PHOSPHATE. [Suspect]
     Active Substance: FLUDARABINE PHOSPHATE
     Indication: MANTLE CELL LYMPHOMA
     Dosage: 55 MG, 1 IN 1 D
     Route: 042
     Dates: start: 20200702, end: 20200704
  3. JCAR017 [Suspect]
     Active Substance: LISOCABTAGENE MARALEUCEL
     Indication: MANTLE CELL LYMPHOMA
     Dosage: SINGLE
     Route: 042
     Dates: start: 20200707, end: 20200707
  4. JCAR017 [Suspect]
     Active Substance: LISOCABTAGENE MARALEUCEL
     Dosage: 1 X 10^8 CAR + T CELLS, SINGLE
     Route: 042
     Dates: start: 20210702, end: 20210702
  5. CYCLOPHOSPHAMIDE. [Suspect]
     Active Substance: CYCLOPHOSPHAMIDE
     Indication: MANTLE CELL LYMPHOMA
     Dosage: 550 MG, 1 IN 1 D
     Route: 042
     Dates: start: 20200702, end: 20200704
  6. CYCLOPHOSPHAMIDE. [Suspect]
     Active Substance: CYCLOPHOSPHAMIDE
     Dosage: 450 MG, 1 IN 1 D
     Route: 042
     Dates: start: 20210625, end: 20210627

REACTIONS (1)
  - Febrile neutropenia [Not Recovered/Not Resolved]

NARRATIVE: CASE EVENT DATE: 20210726
